FAERS Safety Report 8240824-6 (Version None)
Quarter: 2012Q1

REPORT INFORMATION
  Report Type: 
  Country: None (occurrence: None)
  Receive Date: 20120328
  Receipt Date: 20120324
  Transmission Date: 20120608
  Serious: Yes (Other)
  Sender: FDA-Public Use
  Company Number: PHHY2012MX026384

PATIENT
  Sex: Female

DRUGS (2)
  1. GILENYA [Suspect]
     Indication: MULTIPLE SCLEROSIS
     Dosage: 0.5 MG, QD
     Route: 048
     Dates: start: 20120315
  2. GABAPENTIN [Concomitant]
     Indication: NERVOUS SYSTEM DISORDER
     Dosage: 1 DF, QD
     Dates: start: 20070101

REACTIONS (7)
  - FATIGUE [None]
  - ASTHENIA [None]
  - ABASIA [None]
  - SOMNOLENCE [None]
  - MOVEMENT DISORDER [None]
  - MUSCLE SPASTICITY [None]
  - HYPOTONIA [None]
